FAERS Safety Report 6032912-X (Version None)
Quarter: 2008Q4

REPORT INFORMATION
  Report Type: 
  Country: None (occurrence: None)
  Receive Date: 20081224
  Receipt Date: 20081027
  Transmission Date: 20090506
  Serious: No
  Sender: FDA-Public Use
  Company Number: 2008PV036985

PATIENT
  Age: 56 Year
  Sex: Female
  Weight: 86.1834 kg

DRUGS (9)
  1. SYMLIN [Suspect]
     Indication: TYPE 2 DIABETES MELLITUS
     Dosage: 45 MCG;TID;SC;30 MCG;15 MCG
     Route: 058
     Dates: start: 20080801, end: 20080901
  2. SYMLIN [Suspect]
     Indication: TYPE 2 DIABETES MELLITUS
     Dosage: 45 MCG;TID;SC;30 MCG;15 MCG
     Route: 058
     Dates: start: 20080901, end: 20080901
  3. SYMLIN [Suspect]
     Indication: TYPE 2 DIABETES MELLITUS
     Dosage: 45 MCG;TID;SC;30 MCG;15 MCG
     Route: 058
     Dates: start: 20080901
  4. LANTUS [Concomitant]
  5. METFORMIN [Concomitant]
  6. PRANDIN [Concomitant]
  7. SULINDAC [Concomitant]
  8. VYTORIN [Concomitant]
  9. CLINOPRIL [Concomitant]

REACTIONS (3)
  - BLOOD GLUCOSE INCREASED [None]
  - DIZZINESS [None]
  - FATIGUE [None]
